FAERS Safety Report 9554651 (Version 1)
Quarter: 2013Q3

REPORT INFORMATION
  Report Type: Spontaneous
  Country: US (occurrence: US)
  Receive Date: 20130925
  Receipt Date: 20130925
  Transmission Date: 20140515
  Serious: Yes (Death, Hospitalization)
  Sender: FDA-Public Use
  Company Number: US-PFIZER INC-2013271317

PATIENT
  Age: 11 Month
  Sex: Male

DRUGS (14)
  1. LEVETIRACETAM [Suspect]
     Indication: STATUS EPILEPTICUS
     Dosage: 42 MG/KG, UNK
  2. LEVETIRACETAM [Suspect]
     Dosage: 160 MG/KG/DAY
  3. FOSPHENYTOIN SODIUM [Suspect]
     Indication: STATUS EPILEPTICUS
     Dosage: TOTAL 40 MG/KG, UNK (PSL, 20.5 UG/ML)
  4. LORAZEPAM [Suspect]
     Indication: STATUS EPILEPTICUS
     Dosage: TOTAL 0.5 MG/KG, UNK
  5. MIDAZOLAM [Suspect]
     Indication: STATUS EPILEPTICUS
     Dosage: (1 MG/KG/H, 12 MG/H)
  6. PHENOBARBITAL [Suspect]
     Indication: STATUS EPILEPTICUS
     Dosage: TOTAL 60 MG/KG, UNK (PSL = 50.2 UG/ML)
  7. PHENOBARBITAL [Suspect]
     Dosage: (20 MG/KG, PSL, 42.9 UG/ML),, UNK
  8. PHENOBARBITAL [Suspect]
     Dosage: (32 MG/DAY)
  9. PHENOBARBITAL [Suspect]
     Dosage: MAX DOSE 3.5 MG/KG/H
  10. PENTOBARBITAL [Suspect]
     Indication: STATUS EPILEPTICUS
     Dosage: (TITRATED TO 3.5 MG/KG/H, 44 MG/H)
  11. PYRIDOXINE [Suspect]
     Dosage: 100 MG, UNK
  12. TOPIRAMATE [Concomitant]
     Indication: STATUS EPILEPTICUS
     Dosage: 150 MG/DAY
  13. DOPAMINE [Concomitant]
     Dosage: UNK
  14. EPINEPHRINE [Concomitant]
     Dosage: (MAX DOSE 0.12 ?G/KG/MIN)

REACTIONS (1)
  - Drug ineffective [Fatal]
